FAERS Safety Report 12807545 (Version 1)
Quarter: 2016Q4

REPORT INFORMATION
  Report Type: Report from Study
  Country: AT (occurrence: AT)
  Receive Date: 20161004
  Receipt Date: 20161004
  Transmission Date: 20170207
  Serious: Yes (Hospitalization, Other)
  Sender: FDA-Public Use
  Company Number: PHHY2016AT061692

PATIENT
  Sex: Female
  Weight: 70 kg

DRUGS (6)
  1. AFINITOR [Suspect]
     Active Substance: EVEROLIMUS
     Indication: BREAST CANCER
     Dosage: 10 MG, UNK
     Route: 065
     Dates: start: 20151204, end: 20160726
  2. SERACTIL [Concomitant]
     Active Substance: DEXIBUPROFEN
     Indication: PRODUCT USED FOR UNKNOWN INDICATION
     Dosage: UNK
     Route: 065
     Dates: start: 20160804
  3. BUSCOPAN [Concomitant]
     Active Substance: BUTYLSCOPOLAMINE BROMIDE
     Indication: PRODUCT USED FOR UNKNOWN INDICATION
     Dosage: UNK
     Route: 065
     Dates: start: 20160804
  4. MEROPENEM. [Concomitant]
     Active Substance: MEROPENEM
     Indication: PRODUCT USED FOR UNKNOWN INDICATION
     Dosage: UNK
     Route: 042
     Dates: start: 20160804, end: 20160809
  5. AROMASIN [Concomitant]
     Active Substance: EXEMESTANE
     Indication: BREAST CANCER
     Dosage: 25 MG, UNK
     Route: 065
     Dates: start: 20151204
  6. MEXALEN [Concomitant]
     Active Substance: ACETAMINOPHEN
     Indication: PRODUCT USED FOR UNKNOWN INDICATION
     Dosage: UNK
     Route: 065
     Dates: start: 20160804

REACTIONS (29)
  - Tonsillar inflammation [Unknown]
  - Cough [Recovered/Resolved]
  - Chills [Recovered/Resolved]
  - Abdominal pain upper [Unknown]
  - Gastric mucosal hypertrophy [Unknown]
  - Abdominal pain upper [Recovered/Resolved]
  - Gallbladder oedema [Unknown]
  - Rash pustular [Not Recovered/Not Resolved]
  - Duodenitis [Unknown]
  - Pyrexia [Recovered/Resolved]
  - Dyspnoea [Recovered/Resolved]
  - Glossitis [Unknown]
  - Faeces discoloured [Unknown]
  - Musculoskeletal pain [Recovering/Resolving]
  - Chills [Recovered/Resolved]
  - Hypertriglyceridaemia [Unknown]
  - Hypoventilation [Unknown]
  - Fatigue [Not Recovered/Not Resolved]
  - Vulvovaginal pruritus [Not Recovered/Not Resolved]
  - Tooth discolouration [Not Recovered/Not Resolved]
  - Pleural effusion [Unknown]
  - Pancreatitis [Not Recovered/Not Resolved]
  - Diarrhoea [Not Recovered/Not Resolved]
  - Breast disorder [Unknown]
  - Headache [Not Recovered/Not Resolved]
  - Pancreatic duct dilatation [Unknown]
  - Stomatitis [Not Recovered/Not Resolved]
  - Asthenia [Recovering/Resolving]
  - Hepatitis [Unknown]

NARRATIVE: CASE EVENT DATE: 2015
